FAERS Safety Report 5170390-3 (Version None)
Quarter: 2006Q4

REPORT INFORMATION
  Report Type: 
  Country: None (occurrence: None)
  Receive Date: 20061205
  Receipt Date: 20061123
  Transmission Date: 20070319
  Serious: Yes (Other)
  Sender: FDA-Public Use
  Company Number: 2006135471

PATIENT
  Age: 55 Year
  Sex: Female
  Weight: 56.6996 kg

DRUGS (7)
  1. BEXTRA [Suspect]
     Dosage: 10 MG, ORAL
     Route: 048
     Dates: start: 20041007, end: 20050105
  2. NASONEX [Concomitant]
  3. VIOXX [Concomitant]
  4. NORVASC [Concomitant]
  5. HYZAAR [Concomitant]
  6. DETROL LA [Concomitant]
  7. RANITIDINE [Concomitant]

REACTIONS (1)
  - DRUG HYPERSENSITIVITY [None]
